FAERS Safety Report 6397708-8 (Version None)
Quarter: 2009Q4

REPORT INFORMATION
  Report Type: 
  Country: None (occurrence: None)
  Receive Date: 20091007
  Receipt Date: 20090929
  Transmission Date: 20100525
  Serious: Yes (Hospitalization, Other)
  Sender: FDA-Public Use
  Company Number: 09-001555

PATIENT
  Age: 16 Month
  Sex: Male

DRUGS (1)
  1. PHENAZOPYRIDINE HCL TAB [Suspect]
     Dosage: APPROXIMATELY 23 TABLETS, ORAL
     Route: 048

REACTIONS (29)
  - AGITATION [None]
  - BLOOD PRESSURE DECREASED [None]
  - COMA [None]
  - CONVULSION [None]
  - CYANOSIS [None]
  - DEPRESSED LEVEL OF CONSCIOUSNESS [None]
  - DRUG TOXICITY [None]
  - HAEMATOCRIT DECREASED [None]
  - HAEMOGLOBIN DECREASED [None]
  - HAEMOLYSIS [None]
  - ILEUS [None]
  - METABOLIC ACIDOSIS [None]
  - METHAEMOGLOBINAEMIA [None]
  - MICROCYTOSIS [None]
  - MUCOSAL DRYNESS [None]
  - MYDRIASIS [None]
  - OVERDOSE [None]
  - OXYGEN SATURATION DECREASED [None]
  - PLATELET COUNT INCREASED [None]
  - PUPILLARY REFLEX IMPAIRED [None]
  - PYREXIA [None]
  - REACTION TO AZO-DYES [None]
  - RESPIRATORY RATE INCREASED [None]
  - SCLERAL DISCOLOURATION [None]
  - SEDATION [None]
  - SINUS TACHYCARDIA [None]
  - URINE COLOUR ABNORMAL [None]
  - VOMITING [None]
  - YELLOW SKIN [None]
